FAERS Safety Report 18958431 (Version 1)
Quarter: 2021Q1

REPORT INFORMATION
  Report Type: Spontaneous
  Country: US (occurrence: US)
  Receive Date: 20210302
  Receipt Date: 20210302
  Transmission Date: 20210420
  Serious: Yes (Hospitalization)
  Sender: FDA-Public Use
  Company Number: None

PATIENT
  Age: 80 Year
  Sex: Male
  Weight: 90 kg

DRUGS (4)
  1. METFORMIN [Concomitant]
     Active Substance: METFORMIN HYDROCHLORIDE
  2. BLOOD PRESSURE MEDS [Concomitant]
  3. BAMLANIVIMAB. [Suspect]
     Active Substance: BAMLANIVIMAB
     Indication: SARS-COV-2 TEST POSITIVE
     Dosage: ?          OTHER ROUTE:INFUSION?
     Dates: start: 20210131, end: 20210131
  4. CHOLESTEROL MEDS [Concomitant]

REACTIONS (7)
  - Body temperature decreased [None]
  - Cold sweat [None]
  - Depressed level of consciousness [None]
  - Dysarthria [None]
  - Hypoglycaemia [None]
  - Myocardial necrosis marker increased [None]
  - Renal failure [None]

NARRATIVE: CASE EVENT DATE: 20210201
